FAERS Safety Report 8910159 (Version 4)
Quarter: 2013Q4

REPORT INFORMATION
  Report Type: Report from Study
  Country: JP (occurrence: JP)
  Receive Date: 20121114
  Receipt Date: 20131029
  Transmission Date: 20140711
  Serious: Yes (Hospitalization)
  Sender: FDA-Public Use
  Company Number: JP-VERTEX PHARMACEUTICAL INC.-2012-022412

PATIENT
  Age: 61 Year
  Sex: Female

DRUGS (17)
  1. VX-950 (TELAPREVIR) [Suspect]
     Indication: CHRONIC HEPATITIS C
     Dosage: 2250 MG, QD
     Route: 048
     Dates: start: 20120801, end: 20120821
  2. VX-950 (TELAPREVIR) [Suspect]
     Dosage: 1500 MG, QD
     Route: 048
     Dates: start: 20120822, end: 20120902
  3. REBETOL [Suspect]
     Indication: CHRONIC HEPATITIS C
     Dosage: 600 MG, QD
     Route: 048
     Dates: start: 20120801, end: 20120814
  4. REBETOL [Suspect]
     Dosage: 400 MG, QD
     Route: 048
     Dates: start: 20120815, end: 20120828
  5. REBETOL [Suspect]
     Dosage: 200 MG, QD
     Route: 048
     Dates: start: 20120829, end: 20120902
  6. REBETOL [Suspect]
     Dosage: 200 MG, QD
     Route: 048
     Dates: start: 20120912, end: 20121002
  7. REBETOL [Suspect]
     Dosage: 200 MG, QD
     Route: 048
     Dates: start: 20121009, end: 20121016
  8. REBETOL [Suspect]
     Dosage: 400 MG, QD
     Route: 048
     Dates: start: 20121017, end: 20121023
  9. REBETOL [Suspect]
     Dosage: 600 MG, QD
     Route: 048
     Dates: start: 20121024
  10. PEGINTRON [Suspect]
     Indication: CHRONIC HEPATITIS C
     Dosage: 1.5 ?G/KG, QW
     Route: 058
     Dates: start: 20120801, end: 20120829
  11. PEGINTRON [Suspect]
     Dosage: 1.69 ?G/KG, QW
     Route: 058
     Dates: start: 20120912, end: 20120926
  12. PEGINTRON [Suspect]
     Dosage: 1.69 ?G/KG, QW
     Route: 058
     Dates: start: 20121009
  13. LOXONIN [Concomitant]
     Dosage: 180 MG, QD
     Route: 048
     Dates: start: 20120801, end: 20120810
  14. KARY UNI [Concomitant]
     Dosage: UNK, QD
     Route: 031
     Dates: start: 20120903
  15. KARY UNI [Concomitant]
     Dosage: UNK, QD
     Route: 031
     Dates: start: 20120921
  16. LAXOBERON [Concomitant]
     Dosage: 10 ML, QD
     Route: 048
     Dates: start: 20121009, end: 20121009
  17. MAGCOROL [Concomitant]
     Dosage: 100 G, QD
     Route: 048
     Dates: start: 20121009, end: 20121009

REACTIONS (2)
  - Iron deficiency [Recovered/Resolved]
  - Haemoglobin decreased [Recovered/Resolved]
